FAERS Safety Report 4806575-2 (Version None)
Quarter: 2005Q4

REPORT INFORMATION
  Report Type: 
  Country: None (occurrence: None)
  Receive Date: 20051019
  Receipt Date: 20050929
  Transmission Date: 20060501
  Serious: Yes (Hospitalization)
  Sender: FDA-Public Use
  Company Number: USA0508104749

PATIENT
  Age: 63 Year
  Sex: Female

DRUGS (2)
  1. CYMBALTA [Suspect]
     Indication: DEPRESSION
     Dosage: 60 MG
     Dates: start: 20050623, end: 20050719
  2. WELLBUTRI(BUPROPION HYDROCHLORIDE) [Concomitant]
     Indication: DEPRESSION
     Dosage: 60 MG
     Dates: start: 20030523, end: 20050719

REACTIONS (6)
  - CEREBROVASCULAR ACCIDENT [None]
  - COGNITIVE DISORDER [None]
  - CONFUSIONAL STATE [None]
  - COORDINATION ABNORMAL [None]
  - DISTURBANCE IN ATTENTION [None]
  - DYSARTHRIA [None]
